FAERS Safety Report 6724139-0 (Version None)
Quarter: 2010Q2

REPORT INFORMATION
  Report Type: 
  Country: None (occurrence: None)
  Receive Date: 20100513
  Receipt Date: 20091214
  Transmission Date: 20101027
  Serious: No
  Sender: FDA-Public Use
  Company Number: VN-ROCHE-701663

PATIENT
  Age: 22 Year
  Sex: Female
  Weight: 45 kg

DRUGS (17)
  1. OSELTAMIVIR [Suspect]
     Route: 048
     Dates: start: 20091207, end: 20091208
  2. OSELTAMIVIR [Suspect]
     Route: 065
     Dates: start: 20091208
  3. OSELTAMIVIR [Suspect]
     Dosage: LAST DOSE PRIOR TO SAE: 11 DECEMBER 2009, DOSE BLINDED
     Route: 065
     Dates: start: 20091211
  4. IMIPENEM [Concomitant]
     Indication: PNEUMONIA
     Route: 042
     Dates: start: 20091207, end: 20091208
  5. IMIPENEM [Concomitant]
     Route: 042
     Dates: start: 20091209, end: 20091209
  6. AZITHROMYCIN [Concomitant]
     Indication: PNEUMONIA
     Route: 048
     Dates: start: 20091207, end: 20091207
  7. AZITHROMYCIN [Concomitant]
     Route: 048
     Dates: start: 20091209, end: 20091211
  8. ESOMEPRAZOLE [Concomitant]
     Indication: PROPHYLAXIS AGAINST GASTROINTESTINAL ULCER
     Route: 042
     Dates: start: 20091207, end: 20091211
  9. ACETYLCYSTEINE [Concomitant]
     Indication: DRUG THERAPY
     Route: 048
     Dates: start: 20091207, end: 20091211
  10. MIDAZOLAM HCL [Concomitant]
     Indication: SEDATIVE THERAPY
     Dosage: PRN
     Route: 042
     Dates: start: 20091207, end: 20091212
  11. FENTANYL [Concomitant]
     Dosage: PRN
     Route: 042
     Dates: start: 20091207, end: 20091212
  12. FUROSEMIDE [Concomitant]
     Indication: RENAL FAILURE
     Route: 042
     Dates: start: 20091207, end: 20091207
  13. FUROSEMIDE [Concomitant]
     Route: 042
     Dates: start: 20091208, end: 20091210
  14. FUROSEMIDE [Concomitant]
     Route: 042
     Dates: start: 20091210, end: 20091210
  15. FUROSEMIDE [Concomitant]
     Route: 042
     Dates: start: 20091211, end: 20091211
  16. FUROSEMIDE [Concomitant]
     Route: 042
     Dates: start: 20091211, end: 20091212
  17. PARACETAMOL [Concomitant]
     Indication: PROPHYLAXIS
     Route: 042
     Dates: start: 20091207, end: 20091212

REACTIONS (1)
  - ABORTION [None]
